FAERS Safety Report 4344343-9 (Version None)
Quarter: 2004Q2

REPORT INFORMATION
  Report Type: 
  Country: None (occurrence: None)
  Receive Date: 20040419
  Receipt Date: 20040406
  Transmission Date: 20050107
  Serious: Yes (Other)
  Sender: FDA-Public Use
  Company Number: 2004208023FR

PATIENT
  Age: 61 Year
  Sex: Female

DRUGS (3)
  1. DOSTINEX [Suspect]
     Indication: ACROMEGALY
     Dosage: 5 DOSES PER WEEK, ORAL
     Route: 048
  2. CORTISONE (CORTISONE) [Suspect]
  3. LANREOTIDE (LANREOTIDE) [Concomitant]

REACTIONS (5)
  - BREAST CANCER RECURRENT [None]
  - CONSTIPATION [None]
  - DIARRHOEA [None]
  - DIVERTICULITIS [None]
  - DRUG INTERACTION [None]
